FAERS Safety Report 13247455 (Version 2)
Quarter: 2017Q2

REPORT INFORMATION
  Report Type: Spontaneous
  Country: US (occurrence: US)
  Receive Date: 20170217
  Receipt Date: 20170406
  Transmission Date: 20170830
  Serious: Yes (Other)
  Sender: FDA-Public Use
  Company Number: US-ALLERGAN-1705822US

PATIENT
  Age: 47 Year
  Sex: Female
  Weight: 90.72 kg

DRUGS (9)
  1. LEVOTHYROXINE. [Concomitant]
     Active Substance: LEVOTHYROXINE
     Indication: HYPOTHYROIDISM
     Dosage: 125 ?G, QD
     Route: 048
  2. BACLOFEN. [Concomitant]
     Active Substance: BACLOFEN
     Indication: HYPOTONIA
     Dosage: UNK
     Dates: start: 201701
  3. VALIUM [Concomitant]
     Active Substance: DIAZEPAM
     Indication: ANXIETY
     Dosage: 10 MG, BID
     Route: 048
     Dates: start: 2012
  4. VALIUM [Concomitant]
     Active Substance: DIAZEPAM
     Indication: PANIC DISORDER
  5. LEXAPRO [Suspect]
     Active Substance: ESCITALOPRAM OXALATE
     Indication: DEPRESSION
     Dosage: 20 MG, QD
     Route: 048
     Dates: start: 200001
  6. AMBIEN [Concomitant]
     Active Substance: ZOLPIDEM TARTRATE
     Indication: INSOMNIA
     Dosage: 10 MG, PRN
     Route: 048
  7. EMBEDA [Concomitant]
     Active Substance: MORPHINE SULFATE\NALTREXONE HYDROCHLORIDE
     Indication: PRODUCT USED FOR UNKNOWN INDICATION
     Dosage: 20 MG, QD
     Route: 048
     Dates: start: 201611, end: 20170118
  8. LYRICA [Concomitant]
     Active Substance: PREGABALIN
     Indication: FIBROMYALGIA
     Dosage: 150 MG, BID
     Route: 048
     Dates: start: 20170118
  9. LYRICA [Concomitant]
     Active Substance: PREGABALIN
     Dosage: 75 MG, BID
     Route: 048

REACTIONS (9)
  - Anxiety [Recovering/Resolving]
  - Appendix disorder [Unknown]
  - Depression [Recovering/Resolving]
  - Spinal disorder [Unknown]
  - Drug ineffective [Unknown]
  - Musculoskeletal discomfort [Unknown]
  - Nerve compression [Unknown]
  - Suicidal ideation [Recovered/Resolved]
  - Gallbladder disorder [Unknown]

NARRATIVE: CASE EVENT DATE: 2008
